FAERS Safety Report 25067864 (Version 3)
Quarter: 2025Q1

REPORT INFORMATION
  Report Type: Spontaneous
  Country: HU (occurrence: HU)
  Receive Date: 20250312
  Receipt Date: 20250331
  Transmission Date: 20250409
  Serious: Yes (Other)
  Sender: AMERICAN REGENT
  Company Number: HU-AMERICAN REGENT INC-2025001027

PATIENT
  Age: 51 Year
  Sex: Female

DRUGS (1)
  1. FERINJECT [Suspect]
     Active Substance: FERRIC CARBOXYMALTOSE
     Indication: Mineral supplementation
     Route: 042

REACTIONS (6)
  - Loss of consciousness [Recovered/Resolved]
  - Hypoaesthesia [Unknown]
  - Joint swelling [Unknown]
  - Infusion site discolouration [Recovered/Resolved]
  - Infusion site extravasation [Unknown]
  - Administration site discolouration [Recovered/Resolved]
